FAERS Safety Report 9879159 (Version 3)
Quarter: 2014Q2

REPORT INFORMATION
  Report Type: Spontaneous
  Country: US (occurrence: US)
  Receive Date: 20140206
  Receipt Date: 20140402
  Transmission Date: 20141212
  Serious: Yes (Hospitalization)
  Sender: FDA-Public Use
  Company Number: US-B.I. PHARMACEUTICALS,INC./RIDGEFIELD-2013-BI-34747BP

PATIENT
  Age: 76 Year
  Sex: Male
  Weight: 70.31 kg

DRUGS (8)
  1. PRADAXA [Suspect]
     Indication: ANTICOAGULANT THERAPY
     Dosage: 300 MG
     Route: 065
     Dates: start: 201203, end: 20120322
  2. PRADAXA [Suspect]
     Indication: ATRIAL FIBRILLATION
  3. ASPIRIN [Concomitant]
     Dosage: 81 MG
     Route: 065
     Dates: start: 1997
  4. LISINOPRIL [Concomitant]
     Dosage: 5 MG
     Route: 065
     Dates: start: 1997
  5. METOPROLOL [Concomitant]
     Dosage: 100 MG
     Route: 065
     Dates: start: 1997
  6. SIMVASTATIN [Concomitant]
     Dosage: 10 MG
     Route: 065
  7. B 12 [Concomitant]
     Dosage: 1000 MCG
     Route: 065
  8. VITAMIN C [Concomitant]
     Dosage: 500 MG
     Route: 065

REACTIONS (1)
  - Upper gastrointestinal haemorrhage [Unknown]
